FAERS Safety Report 10664696 (Version 4)
Quarter: 2015Q1

REPORT INFORMATION
  Report Type: Spontaneous
  Country: IT (occurrence: IT)
  Receive Date: 20141219
  Receipt Date: 20150123
  Transmission Date: 20150720
  Serious: Yes (Other)
  Sender: FDA-Public Use
  Company Number: IT-JNJFOC-20140821374

PATIENT
  Age: 14 Year
  Sex: Female
  Weight: 50 kg

DRUGS (1)
  1. TOPAMAX [Suspect]
     Active Substance: TOPIRAMATE
     Indication: SELF INJURIOUS BEHAVIOUR
     Route: 048
     Dates: start: 20140822, end: 20140822

REACTIONS (2)
  - Sluggishness [Unknown]
  - Drug abuse [Unknown]

NARRATIVE: CASE EVENT DATE: 20140822
